FAERS Safety Report 7458938-7 (Version None)
Quarter: 2011Q2

REPORT INFORMATION
  Report Type: 
  Country: None (occurrence: None)
  Receive Date: 20110504
  Receipt Date: 20110420
  Transmission Date: 20111010
  Serious: Yes (Hospitalization, Other)
  Sender: FDA-Public Use
  Company Number: US-ELI_LILLY_AND_COMPANY-US201101004044

PATIENT
  Sex: Female
  Weight: 50.34 kg

DRUGS (9)
  1. FORTEO [Suspect]
     Indication: OSTEOPOROSIS
     Dosage: 20 UG, DAILY (1/D)
     Route: 065
     Dates: start: 20101224
  2. CALCIUM W/VITAMIN D NOS [Concomitant]
  3. TYLENOL EXTRA-STRENGTH [Concomitant]
  4. PREDNISONE [Concomitant]
  5. METHOTREXATE [Concomitant]
     Dosage: UNK, WEEKLY (1/W)
  6. COPPER [Concomitant]
  7. FORTEO [Suspect]
     Dosage: 20 UG, DAILY (1/D)
     Route: 065
  8. VITAMIN D [Concomitant]
  9. LISINOPRIL [Concomitant]

REACTIONS (8)
  - UPPER LIMB FRACTURE [None]
  - DRUG DOSE OMISSION [None]
  - FIBULA FRACTURE [None]
  - TIBIA FRACTURE [None]
  - LOWER LIMB FRACTURE [None]
  - FALL [None]
  - RASH [None]
  - PANIC REACTION [None]
